FAERS Safety Report 18131554 (Version 2)
Quarter: 2020Q3

REPORT INFORMATION
  Report Type: Other
  Country: US (occurrence: US)
  Receive Date: 20200810
  Receipt Date: 20200908
  Transmission Date: 20201103
  Serious: Yes (Other)
  Sender: FDA-Public Use
  Company Number: US-ROCHE-2653870

PATIENT
  Age: 42 Year
  Sex: Female

DRUGS (3)
  1. OCREVUS [Suspect]
     Active Substance: OCRELIZUMAB
     Route: 042
     Dates: end: 20171206
  2. OCREVUS [Suspect]
     Active Substance: OCRELIZUMAB
     Indication: RELAPSING MULTIPLE SCLEROSIS
     Route: 042
     Dates: end: 20171206
  3. OCREVUS [Suspect]
     Active Substance: OCRELIZUMAB
     Route: 042
     Dates: end: 20171206

REACTIONS (12)
  - Hypoproteinaemia [Unknown]
  - Staphylococcal infection [Unknown]
  - Infected skin ulcer [Unknown]
  - Skin infection [Unknown]
  - Hypoglycaemia [Unknown]
  - Hypoalbuminaemia [Unknown]
  - Affective disorder [Unknown]
  - Blood alkaline phosphatase increased [Unknown]
  - Hypocalcaemia [Unknown]
  - Neurogenic bladder [Unknown]
  - Lymphopenia [Unknown]
  - Dyslipidaemia [Unknown]

NARRATIVE: CASE EVENT DATE: 20190913
